FAERS Safety Report 4333344-2 (Version None)
Quarter: 2004Q1

REPORT INFORMATION
  Report Type: 
  Country: None (occurrence: None)
  Receive Date: 20040329
  Receipt Date: 20040122
  Transmission Date: 20041129
  Serious: No
  Sender: FDA-Public Use
  Company Number: 04P-163-0247945-00

PATIENT
  Age: 53 Year
  Sex: Female
  Weight: 90.7194 kg

DRUGS (22)
  1. HUMIRA [Suspect]
     Indication: RHEUMATOID ARTHRITIS
     Dosage: 40 MG, 1 IN 2 WK, SUBCUTANEOUS
     Route: 058
     Dates: start: 20031204, end: 20040102
  2. HUMIRA [Suspect]
     Indication: RHEUMATOID ARTHRITIS
     Dosage: 40 MG, 1 IN 2 WK, SUBCUTANEOUS
     Route: 058
     Dates: start: 20040116, end: 20040121
  3. BUCINDOLOL HYDROCHLORIDE [Concomitant]
  4. ZAFIRLUKAST [Concomitant]
  5. IPRATROPIUM BROMIDE [Concomitant]
  6. ALBUTEROL SULFATE [Concomitant]
  7. IPRATROPIUM BROMIDE [Concomitant]
  8. SALMETEROL XINAFOATE [Concomitant]
  9. FLUTICASONE PROPIONATE [Concomitant]
  10. CIMETIDINE HCL [Concomitant]
  11. PANTOPRAZOLE [Concomitant]
  12. FEXOFENADINE HYDROCHLORIDE [Concomitant]
  13. SPIRONOLACTONE [Concomitant]
  14. ATORVASTATIN [Concomitant]
  15. ZELNORM [Concomitant]
  16. VITACON FORTE [Concomitant]
  17. FOLIC ACID [Concomitant]
  18. GLUCOSAMINE [Concomitant]
  19. PENTAZOCINE [Concomitant]
  20. PROPACET 100 [Concomitant]
  21. ASCORBIC ACID [Concomitant]
  22. TOCOPHEROL CONCENTRATE CAP [Concomitant]

REACTIONS (5)
  - HEADACHE [None]
  - INJECTION SITE ERYTHEMA [None]
  - INJECTION SITE PRURITUS [None]
  - PHARYNGOLARYNGEAL PAIN [None]
  - PNEUMONIA [None]
